FAERS Safety Report 25232624 (Version 2)
Quarter: 2025Q2

REPORT INFORMATION
  Report Type: Report from Study
  Country: JP (occurrence: JP)
  Receive Date: 20250424
  Receipt Date: 20250613
  Transmission Date: 20250716
  Serious: Yes (Death, Other)
  Sender: TAKEDA
  Company Number: JP-TAKEDA-2025TJP003954

PATIENT
  Sex: Male
  Weight: 52.2 kg

DRUGS (17)
  1. MARIBAVIR [Suspect]
     Active Substance: MARIBAVIR
     Indication: Cytomegalovirus infection
     Dates: start: 20250226, end: 20250302
  2. TACROLIMUS [Concomitant]
     Active Substance: TACROLIMUS
  3. URSODIOL [Concomitant]
     Active Substance: URSODIOL
  4. LASIX [Concomitant]
     Active Substance: FUROSEMIDE
  5. LANTHANUM CARBONATE [Concomitant]
     Active Substance: LANTHANUM CARBONATE
  6. FEBUXOSTAT [Concomitant]
     Active Substance: FEBUXOSTAT
  7. AMLODIPINE [Concomitant]
     Active Substance: AMLODIPINE BESYLATE
  8. ACYCLOVIR [Concomitant]
     Active Substance: ACYCLOVIR
  9. MEROPENEM [Concomitant]
     Active Substance: MEROPENEM
  10. CANCIDAS [Concomitant]
     Active Substance: CASPOFUNGIN ACETATE
  11. CRESEMBA [Concomitant]
     Active Substance: ISAVUCONAZONIUM SULFATE
  12. CUBICIN [Concomitant]
     Active Substance: DAPTOMYCIN
  13. BECLOMETHASONE DIPROPIONATE [Concomitant]
     Active Substance: BECLOMETHASONE DIPROPIONATE
  14. REMESTEMCEL-L [Concomitant]
     Active Substance: REMESTEMCEL-L
  15. CLOBETASOL [Concomitant]
     Active Substance: CLOBETASOL
  16. GENTAMICIN SULFATE [Concomitant]
     Active Substance: GENTAMICIN SULFATE
  17. GLYCOSAMINOGLYCANS [Concomitant]
     Active Substance: GLYCOSAMINOGLYCANS

REACTIONS (1)
  - Multiple organ dysfunction syndrome [Fatal]

NARRATIVE: CASE EVENT DATE: 20250302
